FAERS Safety Report 8862726 (Version 3)
Quarter: 2013Q1

REPORT INFORMATION
  Report Type: Report from Study
  Country: JP (occurrence: JP)
  Receive Date: 20121026
  Receipt Date: 20130227
  Transmission Date: 20140127
  Serious: Yes (Other)
  Sender: FDA-Public Use
  Company Number: JP-VERTEX PHARMACEUTICAL INC.-2012-023498

PATIENT
  Age: 68 Year
  Sex: Male

DRUGS (13)
  1. VX-950 (TELAPREVIR) [Suspect]
     Indication: CHRONIC HEPATITIS C
     Dosage: 2250 MG, QD
     Route: 048
     Dates: start: 20120814, end: 20120827
  2. VX-950 (TELAPREVIR) [Suspect]
     Dosage: 1500 MG, QD
     Route: 048
     Dates: start: 20120828, end: 20120924
  3. VX-950 (TELAPREVIR) [Suspect]
     Dosage: 1000 MG, QD
     Route: 048
     Dates: start: 20120925, end: 20121015
  4. RIBAVIRIN [Suspect]
     Indication: CHRONIC HEPATITIS C
     Dosage: 800 MG, QD
     Route: 048
     Dates: start: 20120814, end: 20120910
  5. RIBAVIRIN [Suspect]
     Dosage: 600 MG, QD
     Route: 048
     Dates: start: 20120911, end: 20120924
  6. RIBAVIRIN [Suspect]
     Dosage: 400 MG, QD
     Route: 048
     Dates: start: 20120925, end: 20121015
  7. PEGINTERFERON ALFA-2B [Suspect]
     Indication: CHRONIC HEPATITIS C
     Dosage: 1.5 ?G/KG, QW
     Route: 058
     Dates: start: 20120814, end: 20120918
  8. PEGINTERFERON ALFA-2B [Suspect]
     Dosage: 60 ?G, QW
     Route: 058
     Dates: start: 20120925, end: 20120925
  9. PEGINTERFERON ALFA-2B [Suspect]
     Dosage: 40 ?G, QW
     Route: 058
     Dates: start: 20121002, end: 20121009
  10. PURSENNID [Concomitant]
     Dosage: 12 MG, QD
     Route: 048
  11. GASMOTIN [Concomitant]
     Dosage: 15 MG, QD
     Route: 048
     Dates: start: 20120817, end: 20121112
  12. GASTER D [Concomitant]
     Dosage: 20 MG, QD
     Route: 048
     Dates: start: 20120911, end: 20121112
  13. MAINTATE [Concomitant]
     Dosage: 10 MG, QD
     Route: 048

REACTIONS (2)
  - Delirium [Not Recovered/Not Resolved]
  - Delirium [Recovered/Resolved]
